FAERS Safety Report 5802317-2 (Version None)
Quarter: 2008Q3

REPORT INFORMATION
  Report Type: 
  Country: None (occurrence: None)
  Receive Date: 20080707
  Receipt Date: 20080630
  Transmission Date: 20090109
  Serious: Yes (Hospitalization)
  Sender: FDA-Public Use
  Company Number: US-SANOFI-SYNTHELABO-F01200801099

PATIENT
  Sex: Male

DRUGS (3)
  1. BEVACIZUMAB [Suspect]
     Route: 042
     Dates: start: 20080411, end: 20080411
  2. OXALIPLATIN [Suspect]
     Route: 042
  3. CAPECITABINE [Suspect]
     Route: 065

REACTIONS (1)
  - INTESTINAL PERFORATION [None]
